FAERS Safety Report 5658361-1 (Version None)
Quarter: 2008Q1

REPORT INFORMATION
  Report Type: 
  Country: None (occurrence: None)
  Receive Date: 20080310
  Receipt Date: 20070502
  Transmission Date: 20080703
  Serious: No
  Sender: FDA-Public Use
  Company Number: US-BAYER-200710444BCC

PATIENT
  Age: 79 Year
  Sex: Male
  Weight: 73 kg

DRUGS (3)
  1. ALEVE [Suspect]
     Indication: ARTHRALGIA
     Dosage: TOTAL DAILY DOSE: 220 MG  UNIT DOSE: 220 MG
     Route: 048
     Dates: start: 20070203
  2. CLARITIN [Concomitant]
  3. OMEPRAZOLE [Concomitant]

REACTIONS (3)
  - INSOMNIA [None]
  - MUSCULOSKELETAL PAIN [None]
  - RESTLESSNESS [None]
